FAERS Safety Report 6620212-6 (Version None)
Quarter: 2010Q1

REPORT INFORMATION
  Report Type: 
  Country: None (occurrence: None)
  Receive Date: 20100304
  Receipt Date: 20100220
  Transmission Date: 20100710
  Serious: Yes (Hospitalization)
  Sender: FDA-Public Use
  Company Number: 2010AP000347

PATIENT
  Age: 38 Year
  Sex: Male

DRUGS (1)
  1. LITHIUM CARBONATE CAP [Suspect]
     Indication: BIPOLAR DISORDER
     Dosage: 900 MG;QD

REACTIONS (1)
  - BRUGADA SYNDROME [None]
